FAERS Safety Report 5337949-1 (Version None)
Quarter: 2007Q2

REPORT INFORMATION
  Report Type: 
  Country: None (occurrence: None)
  Receive Date: 20070327
  Receipt Date: 20061201
  Transmission Date: 20071010
  Serious: No
  Sender: FDA-Public Use
  Company Number: 233324

PATIENT
  Sex: Female
  Weight: 86.2 kg

DRUGS (2)
  1. AVASTIN [Suspect]
     Indication: MACULAR DEGENERATION
  2. LUCENTIS [Suspect]
     Indication: MACULAR DEGENERATION

REACTIONS (1)
  - VITREOUS FLOATERS [None]
